FAERS Safety Report 15597033 (Version 1)
Quarter: 2018Q4

REPORT INFORMATION
  Report Type: Spontaneous
  Country: FR (occurrence: FR)
  Receive Date: 20181108
  Receipt Date: 20181108
  Transmission Date: 20190205
  Serious: Yes (Other)
  Sender: FDA-Public Use
  Company Number: FR-BAXTER-2018BAX026994

PATIENT
  Sex: Female
  Weight: 74 kg

DRUGS (8)
  1. EPIRUBICIN [Suspect]
     Active Substance: EPIRUBICIN
     Indication: BREAST CANCER FEMALE
     Route: 065
     Dates: start: 20111026, end: 20121207
  2. ENDOXAN 1000 MG, POUDRE POUR SOLUTIONINJECTABLE [Suspect]
     Active Substance: CYCLOPHOSPHAMIDE
     Indication: BREAST CANCER FEMALE
     Route: 065
     Dates: start: 20111026, end: 20111207
  3. ZELITREX [Concomitant]
     Active Substance: VALACYCLOVIR HYDROCHLORIDE
     Indication: PRODUCT USED FOR UNKNOWN INDICATION
     Route: 065
  4. NOLVADEX [Suspect]
     Active Substance: TAMOXIFEN CITRATE
     Indication: BREAST CANCER FEMALE
     Dosage: DOSAGE FORM: TABLET
     Route: 048
  5. FLUOROURACIL. [Suspect]
     Active Substance: FLUOROURACIL
     Indication: BREAST CANCER FEMALE
     Route: 065
     Dates: start: 20111026, end: 20111207
  6. ZOSTER (ACYCLOVIR) [Concomitant]
     Active Substance: ACYCLOVIR
     Indication: PRODUCT USED FOR UNKNOWN INDICATION
     Route: 065
  7. TAXOTERE [Suspect]
     Active Substance: DOCETAXEL
     Indication: BREAST CANCER FEMALE
     Dosage: DOSAGE FORM: INJECTION
     Route: 065
     Dates: start: 20120104, end: 20120215
  8. ZOPHREN [Concomitant]
     Active Substance: ONDANSETRON
     Indication: PRODUCT USED FOR UNKNOWN INDICATION
     Dosage: DOSAGE FORM: INJECTION
     Route: 065

REACTIONS (26)
  - Depression [Unknown]
  - Reading disorder [Unknown]
  - Tinnitus [Unknown]
  - Intellectual disability [Unknown]
  - Loss of personal independence in daily activities [Unknown]
  - Nausea [Unknown]
  - Asthenia [Unknown]
  - Somatic hallucination [Unknown]
  - Tetany [Unknown]
  - Hot flush [Unknown]
  - Fatigue [Unknown]
  - Neuropathy peripheral [Unknown]
  - Pain in extremity [Unknown]
  - Myalgia [Unknown]
  - Pain [Unknown]
  - Disturbance in attention [Unknown]
  - Mental fatigue [Unknown]
  - Dizziness [Unknown]
  - Dysstasia [Unknown]
  - Muscle spasms [Unknown]
  - Insomnia [Unknown]
  - Mental impairment [Unknown]
  - Cognitive disorder [Unknown]
  - Muscle contracture [Unknown]
  - Impaired work ability [Unknown]
  - Visual impairment [Unknown]

NARRATIVE: CASE EVENT DATE: 20140602
